FAERS Safety Report 5565200-6 (Version None)
Quarter: 2007Q4

REPORT INFORMATION
  Report Type: 
  Country: None (occurrence: None)
  Receive Date: 20071218
  Receipt Date: 20071211
  Transmission Date: 20080405
  Serious: Yes (Hospitalization)
  Sender: FDA-Public Use
  Company Number: US-JNJFOC-20071203366

PATIENT
  Sex: Male
  Weight: 77.11 kg

DRUGS (5)
  1. FENTANYL TRANSDERMAL SYSTEM [Suspect]
     Route: 062
  2. FENTANYL TRANSDERMAL SYSTEM [Suspect]
     Route: 062
  3. FENTANYL TRANSDERMAL SYSTEM [Suspect]
     Indication: SPINAL COLUMN STENOSIS
     Route: 062
  4. GABAPENTIN [Concomitant]
     Route: 048
  5. NORCO [Concomitant]
     Indication: PAIN
     Route: 048

REACTIONS (3)
  - DRUG INEFFECTIVE [None]
  - PAIN [None]
  - SPINAL COLUMN STENOSIS [None]
